FAERS Safety Report 19024979 (Version 1)
Quarter: 2021Q1

REPORT INFORMATION
  Report Type: Spontaneous
  Country: US (occurrence: US)
  Receive Date: 20210318
  Receipt Date: 20210318
  Transmission Date: 20210420
  Serious: No
  Sender: FDA-Public Use
  Company Number: US-BAYER-2021-107376

PATIENT
  Age: 41 Year
  Sex: Female

DRUGS (2)
  1. MISOPROST [MISOPROSTOL] [Concomitant]
  2. MIRENA [Suspect]
     Active Substance: LEVONORGESTREL
     Indication: CONTRACEPTION
     Dosage: 20 ?G PER DAY,CONTINUOUSLY
     Route: 015
     Dates: start: 20210316, end: 20210316

REACTIONS (2)
  - Uterine cervix stenosis [None]
  - Device placement issue [None]

NARRATIVE: CASE EVENT DATE: 20210316
